FAERS Safety Report 9391627 (Version 1)
Quarter: 2013Q3

REPORT INFORMATION
  Report Type: Spontaneous
  Country: US (occurrence: US)
  Receive Date: 20130709
  Receipt Date: 20130709
  Transmission Date: 20140515
  Serious: No
  Sender: FDA-Public Use
  Company Number: US-TEVA-414870USA

PATIENT
  Sex: Female
  Weight: 73.55 kg

DRUGS (7)
  1. AZILECT [Suspect]
     Indication: PARKINSON^S DISEASE
     Route: 048
     Dates: start: 201303
  2. LEVODOPA/CARBIDOPA [Concomitant]
     Dosage: 25/100 MG / THREE TIMES A DAY
     Route: 048
  3. LEVOTHYROXINE [Concomitant]
     Dosage: DAILY
     Route: 048
  4. CITALOPRAM [Concomitant]
     Dosage: DAILY
     Route: 048
  5. FISH OIL [Concomitant]
  6. VITAMIN B12 [Concomitant]
  7. VITAMIN B6 [Concomitant]

REACTIONS (5)
  - Malaise [Unknown]
  - Balance disorder [Unknown]
  - Contusion [Unknown]
  - Eructation [Unknown]
  - Pollakiuria [Unknown]
